FAERS Safety Report 17651267 (Version 22)
Quarter: 2021Q2

REPORT INFORMATION
  Report Type: Other
  Country: CA (occurrence: CA)
  Receive Date: 20200409
  Receipt Date: 20210612
  Transmission Date: 20210716
  Serious: Yes (Other)
  Sender: FDA-Public Use
  Company Number: CA-ROCHE-2096690

PATIENT
  Age: 58 Year
  Sex: Male

DRUGS (9)
  1. ACTEMRA [Suspect]
     Active Substance: TOCILIZUMAB
     Route: 058
     Dates: start: 20180711
  2. ZESTORETIC [Concomitant]
     Active Substance: HYDROCHLOROTHIAZIDE\LISINOPRIL
     Indication: PRODUCT USED FOR UNKNOWN INDICATION
  3. RAMIPRIL. [Concomitant]
     Active Substance: RAMIPRIL
     Indication: PRODUCT USED FOR UNKNOWN INDICATION
  4. PANTOPRAZOLE [Concomitant]
     Active Substance: PANTOPRAZOLE
     Indication: PRODUCT USED FOR UNKNOWN INDICATION
     Route: 065
  5. PLAQUENIL [Concomitant]
     Active Substance: HYDROXYCHLOROQUINE SULFATE
     Indication: PRODUCT USED FOR UNKNOWN INDICATION
  6. HYDROQUINONE. [Concomitant]
     Active Substance: HYDROQUINONE
     Indication: PRODUCT USED FOR UNKNOWN INDICATION
     Route: 065
  7. ACTEMRA [Suspect]
     Active Substance: TOCILIZUMAB
     Indication: RHEUMATOID ARTHRITIS
     Route: 058
     Dates: start: 20180315, end: 20210331
  8. METHOTREXATE. [Concomitant]
     Active Substance: METHOTREXATE
     Indication: PRODUCT USED FOR UNKNOWN INDICATION
  9. VERAPAMIL [Concomitant]
     Active Substance: VERAPAMIL HYDROCHLORIDE
     Indication: PRODUCT USED FOR UNKNOWN INDICATION
     Route: 065

REACTIONS (25)
  - Fatigue [Recovering/Resolving]
  - Dyspnoea [Unknown]
  - Arthralgia [Recovered/Resolved]
  - Swelling [Recovering/Resolving]
  - Oxygen saturation decreased [Unknown]
  - Asthenia [Recovering/Resolving]
  - Gastric disorder [Recovering/Resolving]
  - Blood pressure increased [Unknown]
  - Blood pressure systolic increased [Unknown]
  - Angina pectoris [Unknown]
  - Blood pressure systolic abnormal [Unknown]
  - Dizziness [Not Recovered/Not Resolved]
  - Wound infection [Unknown]
  - Bradycardia [Unknown]
  - Oedema [Not Recovered/Not Resolved]
  - Pulmonary fibrosis [Unknown]
  - Abdominal distension [Recovering/Resolving]
  - Blood pressure diastolic increased [Unknown]
  - Pain in extremity [Unknown]
  - Cellulitis [Not Recovered/Not Resolved]
  - Heart rate decreased [Unknown]
  - Heart rate irregular [Recovering/Resolving]
  - Respiratory rate increased [Unknown]
  - Erythema [Not Recovered/Not Resolved]
  - Blood pressure diastolic decreased [Unknown]

NARRATIVE: CASE EVENT DATE: 20180627
